FAERS Safety Report 6247807-6 (Version None)
Quarter: 2009Q2

REPORT INFORMATION
  Report Type: 
  Country: None (occurrence: None)
  Receive Date: 20090626
  Receipt Date: 20090617
  Transmission Date: 20091009
  Serious: Yes (Hospitalization)
  Sender: FDA-Public Use
  Company Number: PHHO2009DE07501

PATIENT
  Sex: Female

DRUGS (6)
  1. RAD 666 RAD+TAB [Suspect]
     Indication: LIVER TRANSPLANT
     Dosage: 8 MG/DAY
     Route: 048
     Dates: start: 20090310
  2. CYCLOSPORINE [Concomitant]
     Indication: LIVER TRANSPLANT
  3. BASILIXIMAB [Concomitant]
     Indication: RENAL TRANSPLANT
  4. PEGINTERFERON ALFA-2A [Concomitant]
     Indication: HEPATITIS C VIRUS TEST
     Dosage: UNK
     Dates: start: 20090612
  5. RIBAVIRIN [Concomitant]
     Indication: HEPATITIS C VIRUS TEST
     Dosage: UNK
     Dates: start: 20090612
  6. AMPICILLIN W/SULBACTAM [Concomitant]
     Dosage: UNK
     Dates: start: 20090615

REACTIONS (3)
  - C-REACTIVE PROTEIN INCREASED [None]
  - PYREXIA [None]
  - TRANSAMINASES INCREASED [None]
